FAERS Safety Report 23282742 (Version 1)
Quarter: 2023Q4

REPORT INFORMATION
  Report Type: Spontaneous
  Country: ES (occurrence: ES)
  Receive Date: 20231211
  Receipt Date: 20231211
  Transmission Date: 20240109
  Serious: Yes (Hospitalization, Other)
  Sender: FDA-Public Use
  Company Number: ES-GLAXOSMITHKLINE-ES2023GSK172751

PATIENT

DRUGS (1)
  1. LAMOTRIGINE [Suspect]
     Active Substance: LAMOTRIGINE
     Indication: Depression
     Dosage: 75 MG, 1D

REACTIONS (7)
  - Drug-induced liver injury [Recovered/Resolved]
  - Drug reaction with eosinophilia and systemic symptoms [Recovered/Resolved]
  - Rash [Recovered/Resolved]
  - Eosinophilia [Recovered/Resolved]
  - Jaundice [Recovered/Resolved]
  - Pyrexia [Recovered/Resolved]
  - Hepatocellular injury [Recovered/Resolved]
